FAERS Safety Report 9613985 (Version 2)
Quarter: 2013Q4

REPORT INFORMATION
  Report Type: Spontaneous
  Country: US (occurrence: US)
  Receive Date: 20131011
  Receipt Date: 20131030
  Transmission Date: 20140711
  Serious: Yes (Other)
  Sender: FDA-Public Use
  Company Number: US-AMGEN-USASP2013070654

PATIENT
  Age: 79 Year
  Sex: Female
  Weight: 81.63 kg

DRUGS (18)
  1. ENBREL [Suspect]
     Indication: RHEUMATOID ARTHRITIS
     Dosage: 50 MG, QWK
     Route: 058
     Dates: start: 2003
  2. ENBREL [Suspect]
     Indication: PSORIASIS
  3. CYCLOBENZAPRINE [Concomitant]
     Dosage: 10 MG, UNK
     Dates: start: 20110802
  4. CYCLOBENZAPRINE [Concomitant]
     Dosage: 10 MG, UNK
     Dates: start: 20120207
  5. ARMOUR THYROID [Concomitant]
     Dosage: 15 MG, UNK
     Dates: start: 20120207
  6. MIDODRINE [Concomitant]
     Dosage: 2.5 MG, UNK
     Dates: start: 20110802
  7. MIDODRINE [Concomitant]
     Dosage: 10 MG, UNK
     Dates: start: 20110802
  8. VALSARTAN [Concomitant]
     Dosage: 80 MG, UNK
     Dates: start: 20110802
  9. OXAZEPAM [Concomitant]
     Dosage: 15 MG, UNK
     Dates: start: 20110802
  10. MECLIZINE                          /00072801/ [Concomitant]
     Dosage: 12.5 MG, UNK
     Dates: start: 20110802
  11. LANSOPRAZOLE [Concomitant]
     Dosage: 30 MG, UNK
     Dates: start: 20110802
  12. GABAPENTIN [Concomitant]
     Dosage: 400 MG, UNK
     Dates: start: 20110802
  13. FLUTICASONE PROPIONATE W/SALMETEROL [Concomitant]
     Dosage: 115 MUG TO 21 MUG / ACTUATION HFA
     Dates: start: 20110802
  14. VITAMIN D2 [Concomitant]
     Dosage: 50000 UNIT, UNK
     Dates: start: 20110802
  15. CELECOXIB [Concomitant]
     Dosage: 200 MG, UNK
     Dates: start: 20110802
  16. ASPIRIN [Concomitant]
     Dosage: 81 MG, UNK
     Dates: start: 20110802
  17. AMITRIPTYLINE [Concomitant]
     Dosage: 25 MG, UNK
     Dates: start: 20110802
  18. METOPROLOL SUCCINATE [Concomitant]
     Dosage: 25 MG, UNK
     Dates: start: 20110802

REACTIONS (1)
  - Cataract [Recovered/Resolved]
